FAERS Safety Report 21089714 (Version 1)
Quarter: 2022Q3

REPORT INFORMATION
  Report Type: Spontaneous
  Country: HU (occurrence: HU)
  Receive Date: 20220715
  Receipt Date: 20220715
  Transmission Date: 20221027
  Serious: Yes (Other)
  Sender: FDA-Public Use
  Company Number: HU-JUVISE-2022008739

PATIENT
  Age: 57 Year
  Sex: Female

DRUGS (3)
  1. TRASTUZUMAB [Suspect]
     Active Substance: TRASTUZUMAB
     Indication: Invasive ductal breast carcinoma
     Dosage: UNK
     Route: 065
     Dates: start: 202006
  2. PERTUZUMAB [Suspect]
     Active Substance: PERTUZUMAB
     Indication: Invasive ductal breast carcinoma
     Dosage: UNK
     Route: 065
     Dates: start: 202006
  3. ANASTROZOLE [Suspect]
     Active Substance: ANASTROZOLE
     Indication: Adjuvant therapy
     Dosage: UNK
     Route: 065
     Dates: start: 202006

REACTIONS (3)
  - Meibomian gland dysfunction [Recovered/Resolved]
  - Eye pain [Recovered/Resolved]
  - Lacrimation increased [Recovered/Resolved]

NARRATIVE: CASE EVENT DATE: 20200701
